FAERS Safety Report 10164967 (Version 2)
Quarter: 2014Q2

REPORT INFORMATION
  Report Type: Spontaneous
  Country: US (occurrence: US)
  Receive Date: 20140510
  Receipt Date: 20140510
  Transmission Date: 20141212
  Serious: No
  Sender: FDA-Public Use
  Company Number: US-BRISTOL-MYERS SQUIBB COMPANY-19639780

PATIENT
  Age: 59 Year
  Sex: Female
  Weight: 82.54 kg

DRUGS (3)
  1. BYDUREON  2MG SUSPENSION [Suspect]
     Indication: TYPE 2 DIABETES MELLITUS
     Dosage: RESTRTED ON 11SEP13
     Route: 058
     Dates: start: 201302
  2. METFORMIN [Concomitant]
  3. DIAZEPAM [Concomitant]

REACTIONS (3)
  - Nausea [Unknown]
  - Constipation [Unknown]
  - Diverticulitis [Unknown]
